FAERS Safety Report 17026327 (Version 1)
Quarter: 2019Q4

REPORT INFORMATION
  Report Type: Spontaneous
  Country: PT (occurrence: PT)
  Receive Date: 20191113
  Receipt Date: 20191113
  Transmission Date: 20200122
  Serious: Yes (Other)
  Sender: FDA-Public Use
  Company Number: PT-SA-2019SA308372

PATIENT
  Age: 39 Year
  Sex: Female

DRUGS (1)
  1. RIFAMPICIN [Suspect]
     Active Substance: RIFAMPIN
     Indication: LOCALISED INFECTION
     Dosage: 600 MG, QD

REACTIONS (12)
  - Scleroderma [Recovering/Resolving]
  - Hyperbilirubinaemia [Recovering/Resolving]
  - Asthenia [Recovering/Resolving]
  - Yellow skin [Recovering/Resolving]
  - Jaundice [Recovering/Resolving]
  - Hepatocellular injury [Recovering/Resolving]
  - Hypergammaglobulinaemia [Recovering/Resolving]
  - Coagulopathy [Recovering/Resolving]
  - Autoimmune hepatitis [Recovering/Resolving]
  - Hepatomegaly [Recovering/Resolving]
  - Hepatic necrosis [Recovering/Resolving]
  - Thrombocytopenia [Recovering/Resolving]
